FAERS Safety Report 24622459 (Version 3)
Quarter: 2024Q4

REPORT INFORMATION
  Report Type: Spontaneous
  Country: US (occurrence: US)
  Receive Date: 20241115
  Receipt Date: 20241207
  Transmission Date: 20250114
  Serious: No
  Sender: HETERO
  Company Number: US-HETERO-HET2024US04127

PATIENT
  Age: 81 Year
  Sex: Female

DRUGS (2)
  1. LOSARTAN [Suspect]
     Active Substance: LOSARTAN
     Indication: Blood pressure abnormal
     Dosage: 25 MILLIGRAM
     Route: 048
     Dates: start: 20241018, end: 20241018
  2. METOPROLOL [Concomitant]
     Active Substance: METOPROLOL
     Indication: Product used for unknown indication
     Dosage: 25 MILLIGRAM
     Route: 065

REACTIONS (3)
  - Product odour abnormal [Unknown]
  - Product taste abnormal [Unknown]
  - Product use complaint [Unknown]

NARRATIVE: CASE EVENT DATE: 20241018
